FAERS Safety Report 13006119 (Version 1)
Quarter: 2016Q4

REPORT INFORMATION
  Report Type: Spontaneous
  Country: US (occurrence: US)
  Receive Date: 20161207
  Receipt Date: 20161207
  Transmission Date: 20170207
  Serious: No
  Sender: FDA-Public Use
  Company Number: None

PATIENT
  Sex: Male

DRUGS (2)
  1. QUINIDINE SULFATE. [Suspect]
     Active Substance: QUINIDINE SULFATE
  2. QUETIAPINE FUMARATE. [Suspect]
     Active Substance: QUETIAPINE FUMARATE

REACTIONS (8)
  - Drug dispensing error [None]
  - Feeling drunk [None]
  - Dry mouth [None]
  - Balance disorder [None]
  - Physical product label issue [None]
  - Speech disorder [None]
  - Wrong drug administered [None]
  - Dizziness [None]

NARRATIVE: CASE EVENT DATE: 2016
